FAERS Safety Report 16179870 (Version 1)
Quarter: 2019Q2

REPORT INFORMATION
  Report Type: Report from Study
  Country: US (occurrence: US)
  Receive Date: 20190410
  Receipt Date: 20190410
  Transmission Date: 20190711
  Serious: Yes (Other)
  Sender: FDA-Public Use
  Company Number: US-JNJFOC-20180623252

PATIENT
  Sex: Female
  Weight: 51 kg

DRUGS (17)
  1. IMBRUVICA [Suspect]
     Active Substance: IBRUTINIB
     Indication: MANTLE CELL LYMPHOMA
     Dosage: 560 MG, QD
     Route: 048
     Dates: start: 20180519, end: 20181019
  2. IPRATROPIUM BROMIDE/ALBUTEROL SULFATE [Concomitant]
     Active Substance: ALBUTEROL SULFATE\IPRATROPIUM BROMIDE
  3. ASPIRIN. [Concomitant]
     Active Substance: ASPIRIN
     Dosage: 81 MG, UNK
  4. ZYRTEC [Concomitant]
     Active Substance: CETIRIZINE HYDROCHLORIDE
  5. DIGOXIN. [Concomitant]
     Active Substance: DIGOXIN
  6. FLUTICASONE PROPIONATE. [Concomitant]
     Active Substance: FLUTICASONE PROPIONATE
  7. MULTIVITAMINS [Concomitant]
     Active Substance: VITAMINS
  8. IMBRUVICA [Suspect]
     Active Substance: IBRUTINIB
     Indication: MANTLE CELL LYMPHOMA
     Dosage: 560 MG, QD
     Route: 048
     Dates: start: 20161111, end: 20180518
  9. IMBRUVICA [Suspect]
     Active Substance: IBRUTINIB
     Indication: MANTLE CELL LYMPHOMA
     Route: 048
     Dates: start: 20161114, end: 20180518
  10. TRAMADOL. [Concomitant]
     Active Substance: TRAMADOL
  11. LASIX [Concomitant]
     Active Substance: FUROSEMIDE
  12. CULTURELLE [Concomitant]
     Active Substance: LACTOBACILLUS RHAMNOSUS
  13. DOCUSATE SODIUM. [Concomitant]
     Active Substance: DOCUSATE SODIUM
  14. COREG [Concomitant]
     Active Substance: CARVEDILOL
  15. ZOFRAN [Concomitant]
     Active Substance: ONDANSETRON HYDROCHLORIDE
  16. IMBRUVICA [Suspect]
     Active Substance: IBRUTINIB
     Indication: MANTLE CELL LYMPHOMA
     Route: 048
     Dates: start: 20181020
  17. MUCINEX [Concomitant]
     Active Substance: GUAIFENESIN

REACTIONS (10)
  - Bronchitis [Unknown]
  - Nasopharyngitis [Unknown]
  - Chronic obstructive pulmonary disease [Not Recovered/Not Resolved]
  - Post procedural haemorrhage [Unknown]
  - Neoplasm [Unknown]
  - Pleural effusion [Unknown]
  - Foot operation [Unknown]
  - Nodule [Unknown]
  - Ingrowing nail [Unknown]
  - Fatigue [Unknown]

NARRATIVE: CASE EVENT DATE: 2018
